FAERS Safety Report 6533677-5 (Version None)
Quarter: 2010Q1

REPORT INFORMATION
  Report Type: 
  Country: None (occurrence: None)
  Receive Date: 20100108
  Receipt Date: 20100108
  Transmission Date: 20100710
  Serious: Yes (Life-Threatening, Other)
  Sender: FDA-Public Use
  Company Number: None

PATIENT
  Age: 7 Year
  Sex: Male
  Weight: 32.2 kg

DRUGS (9)
  1. SINGULAIR [Suspect]
     Indication: ASTHMA
     Dosage: 5MG ONCE PO
     Route: 048
     Dates: start: 20080824, end: 20091009
  2. ATROVENT [Concomitant]
  3. ALBUTEROL SULATE [Concomitant]
  4. RISPERDAL [Concomitant]
  5. PULMICORT RESPULES [Concomitant]
  6. FORMOTEROL AEROLIZER [Concomitant]
  7. SYMBICORT [Concomitant]
  8. VERAMYST [Concomitant]
  9. NASONEX [Concomitant]

REACTIONS (8)
  - ABNORMAL BEHAVIOUR [None]
  - DEPRESSION [None]
  - HOMICIDAL IDEATION [None]
  - MENTAL DISORDER [None]
  - MIDDLE INSOMNIA [None]
  - NERVOUS SYSTEM DISORDER [None]
  - SLEEP DISORDER [None]
  - SUICIDAL IDEATION [None]
